FAERS Safety Report 6355591-0 (Version None)
Quarter: 2009Q3

REPORT INFORMATION
  Report Type: 
  Country: None (occurrence: None)
  Receive Date: 20090910
  Receipt Date: 20090904
  Transmission Date: 20100115
  Serious: Yes (Death, Hospitalization)
  Sender: FDA-Public Use
  Company Number: WAES 0909USA00672

PATIENT
  Age: 67 Year
  Sex: Male
  Weight: 91.6266 kg

DRUGS (12)
  1. TAB DECARDRON (DEXAMETHASONE) [Suspect]
     Indication: WALDENSTROM'S MACROGLOBULINAEMIA
     Dosage: PO
     Route: 048
     Dates: start: 20080926, end: 20081202
  2. TAB ENZASTAURIN HYDROCHLORIDE UNK [Suspect]
     Indication: WALDENSTROM'S MACROGLOBULINAEMIA
     Dosage: 350 MG/TID/PO; 250 MG/BID/PO
     Route: 048
     Dates: start: 20080731, end: 20080731
  3. TAB ENZASTAURIN HYDROCHLORIDE UNK [Suspect]
     Indication: WALDENSTROM'S MACROGLOBULINAEMIA
     Dosage: 350 MG/TID/PO; 250 MG/BID/PO
     Route: 048
     Dates: start: 20080801, end: 20081203
  4. BENADRYL [Concomitant]
  5. BENTYL [Concomitant]
  6. FLOMAX [Concomitant]
  7. PRILOSEC [Concomitant]
  8. ASCORBIC ACID [Concomitant]
  9. FERROUS SULFATE TAB [Concomitant]
  10. FOLIC ACID [Concomitant]
  11. PROCHLORPERAZINE [Concomitant]
  12. VITAMINS (UNSPECIFIED) [Concomitant]

REACTIONS (2)
  - CLOSTRIDIUM DIFFICILE COLITIS [None]
  - SEPTIC SHOCK [None]
